FAERS Safety Report 5944171-4 (Version None)
Quarter: 2008Q4

REPORT INFORMATION
  Report Type: 
  Country: None (occurrence: None)
  Receive Date: 20081104
  Receipt Date: 20081021
  Transmission Date: 20090506
  Serious: Yes (Hospitalization, Other)
  Sender: FDA-Public Use
  Company Number: A-US2007-15154

PATIENT
  Age: 68 Year
  Sex: Female
  Weight: 125 kg

DRUGS (3)
  1. TRACLEER [Suspect]
     Indication: PULMONARY ARTERIAL HYPERTENSION
     Dosage: 125 MG BID ORAL; 62.5 MG BID ORAL; 62.5 MG BID ORAL
     Route: 048
     Dates: start: 20070420, end: 20070606
  2. TRACLEER [Suspect]
     Indication: PULMONARY ARTERIAL HYPERTENSION
     Dosage: 125 MG BID ORAL; 62.5 MG BID ORAL; 62.5 MG BID ORAL
     Route: 048
     Dates: start: 20070607, end: 20081007
  3. TRACLEER [Suspect]
     Indication: PULMONARY ARTERIAL HYPERTENSION
     Dosage: 125 MG BID ORAL; 62.5 MG BID ORAL; 62.5 MG BID ORAL
     Route: 048
     Dates: start: 20071008, end: 20081015

REACTIONS (6)
  - CONDITION AGGRAVATED [None]
  - FATIGUE [None]
  - FEELING JITTERY [None]
  - MYOSITIS [None]
  - SWELLING FACE [None]
  - TRANSIENT ISCHAEMIC ATTACK [None]
